FAERS Safety Report 5399371-1 (Version None)
Quarter: 2007Q3

REPORT INFORMATION
  Report Type: 
  Country: None (occurrence: None)
  Receive Date: 20070727
  Receipt Date: 20070725
  Transmission Date: 20080115
  Serious: Yes (Other)
  Sender: FDA-Public Use
  Company Number: CN-BRISTOL-MYERS SQUIBB COMPANY-13856752

PATIENT
  Sex: Male

DRUGS (1)
  1. BARACLUDE [Suspect]

REACTIONS (1)
  - HEPATIC LESION [None]
